FAERS Safety Report 25585058 (Version 1)
Quarter: 2025Q3

REPORT INFORMATION
  Report Type: Spontaneous
  Country: JP (occurrence: JP)
  Receive Date: 20250721
  Receipt Date: 20250721
  Transmission Date: 20251021
  Serious: Yes (Other)
  Sender: MERCK SHARP & DOHME LLC
  Company Number: JP-009507513-2254843

PATIENT
  Age: 6 Decade
  Sex: Female

DRUGS (3)
  1. KEYTRUDA [Suspect]
     Active Substance: PEMBROLIZUMAB
     Indication: Triple negative breast cancer
     Dosage: 4 CYCLES.
     Route: 041
     Dates: start: 202410, end: 202501
  2. PACLITAXEL [Concomitant]
     Active Substance: PACLITAXEL
     Route: 041
     Dates: start: 202410, end: 202501
  3. CARBOPLATIN [Concomitant]
     Active Substance: CARBOPLATIN
     Route: 041
     Dates: start: 202410, end: 202501

REACTIONS (7)
  - Adrenal insufficiency [Recovered/Resolved]
  - Renal impairment [Recovered/Resolved]
  - Generalised oedema [Unknown]
  - Dehydration [Unknown]
  - Hyperglycaemia [Unknown]
  - Therapy partial responder [Unknown]
  - Impaired healing [Unknown]

NARRATIVE: CASE EVENT DATE: 20250101
